FAERS Safety Report 10512683 (Version 2)
Quarter: 2014Q4

REPORT INFORMATION
  Report Type: Spontaneous
  Country: JP (occurrence: JP)
  Receive Date: 20141012
  Receipt Date: 20141103
  Transmission Date: 20150528
  Serious: Yes (Hospitalization)
  Sender: FDA-Public Use
  Company Number: JP-MYLANLABS-2014M1006294

PATIENT

DRUGS (2)
  1. GLIMEPIRIDE TABLETS 1 MG ^MYLAN^ [Suspect]
     Active Substance: GLIMEPIRIDE
     Indication: DIABETES MELLITUS
     Dosage: 3 MG, UNK
     Route: 048
  2. EQUA [Suspect]
     Active Substance: VILDAGLIPTIN
     Indication: DIABETES MELLITUS
     Route: 048

REACTIONS (3)
  - Intentional product misuse [Unknown]
  - Hypoglycaemia [Recovering/Resolving]
  - Hyperinsulinaemia [Recovering/Resolving]
